FAERS Safety Report 22153852 (Version 1)
Quarter: 2023Q1

REPORT INFORMATION
  Report Type: Spontaneous
  Country: US (occurrence: US)
  Receive Date: 20230330
  Receipt Date: 20230330
  Transmission Date: 20230418
  Serious: No
  Sender: FDA-Public Use
  Company Number: US-LEO Pharma-350737

PATIENT
  Sex: Male
  Weight: 87 kg

DRUGS (1)
  1. ADBRY [Suspect]
     Active Substance: TRALOKINUMAB-LDRM
     Indication: Product used for unknown indication
     Dosage: DOSAGE : 300 MG EVERY OTHER WEEK UNDER THE SKIN
     Route: 058

REACTIONS (2)
  - Rash pruritic [Unknown]
  - Skin haemorrhage [Unknown]
